FAERS Safety Report 8552795-3 (Version None)
Quarter: 2012Q3

REPORT INFORMATION
  Report Type: 
  Country: None (occurrence: None)
  Receive Date: 20120731
  Receipt Date: 20120727
  Transmission Date: 20120928
  Serious: Yes (Other)
  Sender: FDA-Public Use
  Company Number: US-PFIZER INC-2012182951

PATIENT
  Sex: Female
  Weight: 67.12 kg

DRUGS (3)
  1. LYRICA [Suspect]
     Indication: PROCEDURAL PAIN
  2. CELEBREX [Suspect]
     Indication: BACK PAIN
     Dosage: 100 MG, DAILY
     Dates: start: 20120727
  3. LYRICA [Suspect]
     Indication: INSOMNIA
     Dosage: 50 MG, DAILY
     Dates: start: 20120701

REACTIONS (1)
  - OEDEMA PERIPHERAL [None]
